FAERS Safety Report 9181656 (Version 1)
Quarter: 2013Q1

REPORT INFORMATION
  Report Type: Spontaneous
  Country: US (occurrence: None)
  Receive Date: 20130321
  Receipt Date: 20130321
  Transmission Date: 20140127
  Serious: Yes (Life-Threatening, Other)
  Sender: FDA-Public Use
  Company Number: None

PATIENT
  Age: 79 Year
  Sex: Female
  Weight: 76.66 kg

DRUGS (2)
  1. JANUVIA [Suspect]
     Dates: start: 20120301, end: 20121102
  2. ONGLYZA [Suspect]
     Dates: start: 20111001, end: 20120301

REACTIONS (1)
  - Pancreatic carcinoma [None]
